FAERS Safety Report 10156430 (Version 1)
Quarter: 2014Q2

REPORT INFORMATION
  Report Type: Spontaneous
  Country: DE (occurrence: None)
  Receive Date: 20140411
  Receipt Date: 20140411
  Transmission Date: 20141212
  Serious: Yes (Other)
  Sender: FDA-Public Use
  Company Number: WIL-003-13-DE

PATIENT
  Age: 26 Year
  Sex: Female

DRUGS (1)
  1. WILATE [Suspect]
     Indication: VON WILLEBRAND^S DISEASE
     Dosage: 7 MIN 1000 IU, INTRAVENOUS
     Route: 042
     Dates: start: 20130328, end: 20130328

REACTIONS (3)
  - Maternal exposure during pregnancy [None]
  - Abortion spontaneous [None]
  - Hypersensitivity [None]
